FAERS Safety Report 7543770-6 (Version None)
Quarter: 2011Q2

REPORT INFORMATION
  Report Type: 
  Country: None (occurrence: None)
  Receive Date: 20110613
  Receipt Date: 20040625
  Transmission Date: 20111010
  Serious: Yes (Hospitalization)
  Sender: FDA-Public Use
  Company Number: PHEH2004US06825

PATIENT
  Sex: Male

DRUGS (3)
  1. RISPERDAL [Concomitant]
  2. EXELON [Suspect]
     Indication: DEMENTIA ALZHEIMER'S TYPE
     Dosage: 4.5 MG, BID
     Route: 048
     Dates: start: 20031225
  3. NAPROXEN (ALEVE) [Concomitant]

REACTIONS (4)
  - PERICARDIAL EFFUSION [None]
  - PNEUMONIA [None]
  - DYSPNOEA [None]
  - COUGH [None]
